FAERS Safety Report 20933009 (Version 1)
Quarter: 2022Q2

REPORT INFORMATION
  Report Type: Report from Study
  Country: BE (occurrence: BE)
  Receive Date: 20220608
  Receipt Date: 20220608
  Transmission Date: 20220721
  Serious: No
  Sender: FDA-Public Use
  Company Number: BE-KARYOPHARM-2022KPT000417

PATIENT
  Age: 52 Year
  Sex: Male

DRUGS (3)
  1. SELINEXOR [Suspect]
     Active Substance: SELINEXOR
     Indication: Plasma cell myeloma
     Dosage: UNK
     Route: 048
     Dates: start: 20200918, end: 20201016
  2. VELCADE [Concomitant]
     Active Substance: BORTEZOMIB
  3. DEXAMETHASONE [Concomitant]
     Active Substance: DEXAMETHASONE
     Indication: Plasma cell myeloma

REACTIONS (5)
  - Constipation [Unknown]
  - Thrombocytopenia [Unknown]
  - Dyspnoea [Unknown]
  - Diarrhoea [Unknown]
  - Upper respiratory tract infection [Unknown]
